FAERS Safety Report 12259788 (Version 2)
Quarter: 2016Q2

REPORT INFORMATION
  Report Type: Spontaneous
  Country: FR (occurrence: FR)
  Receive Date: 20160412
  Receipt Date: 20160429
  Transmission Date: 20160815
  Serious: Yes (Hospitalization)
  Sender: FDA-Public Use
  Company Number: FR-EMD SERONO-8076768

PATIENT
  Age: 32 Year
  Sex: Female

DRUGS (3)
  1. DECAPEPTYL /00486501/ [Suspect]
     Active Substance: GONADORELIN
     Indication: IN VITRO FERTILISATION
     Dosage: FORM STRENGTH: 3 (UNSPECIFIED UNITS)
     Route: 058
     Dates: start: 201510
  2. MENOPUR [Suspect]
     Active Substance: FOLLICLE STIMULATING HORMONE BETA POLYPEPTIDE\LUTROPIN ALFA
     Indication: IN VITRO FERTILISATION
     Dosage: FORM STRENGTH: 300 (UNSPECIFIED UNITS)
     Route: 058
     Dates: start: 201510
  3. OVITRELLE [Suspect]
     Active Substance: CHORIOGONADOTROPIN ALFA
     Indication: IN VITRO FERTILISATION
     Route: 058
     Dates: start: 20151028, end: 20151028

REACTIONS (4)
  - Ovarian hyperstimulation syndrome [Recovered/Resolved]
  - Nausea [Recovered/Resolved]
  - Abortion spontaneous [Recovered/Resolved]
  - Abdominal distension [Recovered/Resolved]

NARRATIVE: CASE EVENT DATE: 20151116
